FAERS Safety Report 4442821-5 (Version None)
Quarter: 2004Q3

REPORT INFORMATION
  Report Type: 
  Country: None (occurrence: None)
  Receive Date: 20040903
  Receipt Date: 20040608
  Transmission Date: 20050211
  Serious: Yes (Other)
  Sender: FDA-Public Use
  Company Number: 2004UW11812

PATIENT
  Age: 79 Year
  Sex: Female
  Weight: 60.782 kg

DRUGS (5)
  1. CRESTOR [Suspect]
     Indication: BLOOD CHOLESTEROL INCREASED
     Dosage: A FEW MONTHS
  2. CRESTOR [Suspect]
     Indication: BLOOD CHOLESTEROL INCREASED
     Dates: start: 20040605
  3. FOSAMAX [Concomitant]
  4. ATENOLOL [Concomitant]
  5. NORVASC [Concomitant]

REACTIONS (1)
  - BURNING SENSATION [None]
